FAERS Safety Report 5462965-9 (Version None)
Quarter: 2007Q3

REPORT INFORMATION
  Report Type: 
  Country: None (occurrence: None)
  Receive Date: 20070920
  Receipt Date: 20070614
  Transmission Date: 20080115
  Serious: No
  Sender: FDA-Public Use
  Company Number: US-BAUSCH-2007BL001984

PATIENT
  Age: 85 Year
  Sex: Female

DRUGS (2)
  1. ZYLET [Suspect]
     Indication: EYE INFECTION
     Route: 047
     Dates: start: 20070607, end: 20070607
  2. ^OTHER UNSPECIFIED MEDICATIONS^ [Concomitant]

REACTIONS (2)
  - EYE IRRITATION [None]
  - VISION BLURRED [None]
